FAERS Safety Report 16174903 (Version 1)
Quarter: 2019Q2

REPORT INFORMATION
  Report Type: Spontaneous
  Country: US (occurrence: US)
  Receive Date: 20190409
  Receipt Date: 20190409
  Transmission Date: 20190711
  Serious: Yes (Other)
  Sender: FDA-Public Use
  Company Number: US-ELI_LILLY_AND_COMPANY-US201904001647

PATIENT
  Sex: Female

DRUGS (2)
  1. HUMALOG [Suspect]
     Active Substance: INSULIN LISPRO
     Indication: DIABETES MELLITUS
     Dosage: SLIDING SCALE BEFORE MEALS
     Route: 058
  2. LANTUS [Concomitant]
     Active Substance: INSULIN GLARGINE

REACTIONS (10)
  - Feeling abnormal [Not Recovered/Not Resolved]
  - Pain in extremity [Not Recovered/Not Resolved]
  - Fall [Unknown]
  - Foot fracture [Not Recovered/Not Resolved]
  - Atrial fibrillation [Not Recovered/Not Resolved]
  - Hip fracture [Not Recovered/Not Resolved]
  - Visual impairment [Recovering/Resolving]
  - Arthralgia [Not Recovered/Not Resolved]
  - Fall [Not Recovered/Not Resolved]
  - Stress [Not Recovered/Not Resolved]

NARRATIVE: CASE EVENT DATE: 20170704
